FAERS Safety Report 22342263 (Version 1)
Quarter: 2023Q2

REPORT INFORMATION
  Report Type: Spontaneous
  Country: US (occurrence: US)
  Receive Date: 20230519
  Receipt Date: 20230519
  Transmission Date: 20230721
  Serious: No
  Sender: FDA-Public Use
  Company Number: US-LEO Pharma-352055

PATIENT
  Age: 50 Year
  Sex: Male

DRUGS (3)
  1. DOVONEX [Suspect]
     Active Substance: CALCIPOTRIENE
     Indication: Product used for unknown indication
  2. DOVONEX [Suspect]
     Active Substance: CALCIPOTRIENE
     Indication: Psoriasis
  3. DOVONEX [Suspect]
     Active Substance: CALCIPOTRIENE
     Indication: Psoriasis

REACTIONS (1)
  - Drug ineffective [Unknown]
